FAERS Safety Report 20796638 (Version 1)
Quarter: 2022Q2

REPORT INFORMATION
  Report Type: Spontaneous
  Country: US (occurrence: None)
  Receive Date: 20220506
  Receipt Date: 20220506
  Transmission Date: 20220721
  Serious: Yes (Life-Threatening)
  Sender: FDA-Public Use
  Company Number: None

PATIENT
  Age: 72 Day
  Sex: Male
  Weight: 112.5 kg

DRUGS (2)
  1. LUMASON [Suspect]
     Active Substance: SULFUR HEXAFLUORIDE
     Indication: COVID-19
     Dosage: OTHER FREQUENCY : ONCE;?
     Route: 040
  2. LUMASON [Concomitant]
     Active Substance: SULFUR HEXAFLUORIDE
     Dates: start: 20220503, end: 20220503

REACTIONS (3)
  - Paraesthesia [None]
  - Cardio-respiratory arrest [None]
  - Cardiac procedure complication [None]
